FAERS Safety Report 15436695 (Version 3)
Quarter: 2018Q4

REPORT INFORMATION
  Report Type: Spontaneous
  Country: ES (occurrence: ES)
  Receive Date: 20180927
  Receipt Date: 20181017
  Transmission Date: 20190204
  Serious: Yes (Other)
  Sender: FDA-Public Use
  Company Number: ES-ALLERGAN-1846479US

PATIENT
  Age: 52 Year
  Sex: Male

DRUGS (2)
  1. BIMATOPROST UNK [Suspect]
     Active Substance: BIMATOPROST
     Indication: INTRAOCULAR PRESSURE INCREASED
     Dosage: 1 DRP, Q24H
     Route: 047
  2. BRINZOLAMIDE, TIMOLOL MALEATE [Suspect]
     Active Substance: BRINZOLAMIDE\TIMOLOL MALEATE
     Indication: INTRAOCULAR PRESSURE INCREASED
     Dosage: 1 DRP, Q12H
     Route: 047

REACTIONS (10)
  - Cataract cortical [Unknown]
  - Punctate keratitis [Unknown]
  - Conjunctival hyperaemia [Unknown]
  - Eye pain [Unknown]
  - Ocular hyperaemia [Unknown]
  - Blepharal pigmentation [Unknown]
  - Anterior chamber pigmentation [Unknown]
  - Intraocular pressure increased [Unknown]
  - Cataract subcapsular [Unknown]
  - Corneal pigmentation [Unknown]
